FAERS Safety Report 9451443 (Version 1)
Quarter: 2013Q3

REPORT INFORMATION
  Report Type: Spontaneous
  Country: US (occurrence: US)
  Receive Date: 20130809
  Receipt Date: 20130809
  Transmission Date: 20140515
  Serious: Yes (Other)
  Sender: FDA-Public Use
  Company Number: US-B.I. PHARMACEUTICALS,INC./RIDGEFIELD-2013-BI-23469BP

PATIENT
  Sex: Male

DRUGS (4)
  1. SPIRIVA [Suspect]
     Indication: CHRONIC OBSTRUCTIVE PULMONARY DISEASE
     Route: 065
  2. ADVAIR [Suspect]
     Indication: CHRONIC OBSTRUCTIVE PULMONARY DISEASE
     Route: 055
     Dates: start: 2010
  3. PAIN MEDICATION [Concomitant]
     Indication: PAIN
  4. OMEPRAZOLE [Concomitant]

REACTIONS (2)
  - Impaired gastric emptying [Not Recovered/Not Resolved]
  - Drug administration error [Not Recovered/Not Resolved]
